FAERS Safety Report 7121150-5 (Version None)
Quarter: 2010Q4

REPORT INFORMATION
  Report Type: 
  Country: None (occurrence: None)
  Receive Date: 20101124
  Receipt Date: 20101109
  Transmission Date: 20110411
  Serious: Yes (Hospitalization)
  Sender: FDA-Public Use
  Company Number: PHHY2010JP73104

PATIENT
  Sex: Female

DRUGS (12)
  1. FAMVIR [Suspect]
     Indication: HERPES ZOSTER
     Dosage: 1000 MG
     Route: 048
     Dates: start: 20101007, end: 20101013
  2. MECOBALAMIN [Concomitant]
     Dosage: UNK
     Dates: start: 20101007, end: 20101015
  3. GENTAMICIN SULFATE [Concomitant]
     Dosage: UNK
     Dates: start: 20101007, end: 20101015
  4. TRIAMCINOLONE ACETONIDE [Concomitant]
     Dosage: UNK
     Dates: start: 20101007, end: 20101015
  5. LOSARTAN POTASSIUM [Concomitant]
     Dosage: UNK
  6. AMLODIPINE BESYLATE [Concomitant]
     Dosage: UNK
  7. DIGOXIN [Concomitant]
     Dosage: UNK
     Dates: end: 20101022
  8. ISOSORBIDE DINITRATE [Concomitant]
     Dosage: UNK
  9. ETIZOLAM [Concomitant]
     Dosage: UNK
  10. VERAPAMIL HYDROCHLORIDE [Concomitant]
     Dosage: UNK
  11. SENNOSIDE [Concomitant]
     Dosage: UNK
  12. ACETAMINOPHEN [Concomitant]
     Dosage: UNK
     Dates: start: 20101007, end: 20101015

REACTIONS (9)
  - ANAEMIA [None]
  - ATRIAL NATRIURETIC PEPTIDE INCREASED [None]
  - BRAIN NATRIURETIC PEPTIDE INCREASED [None]
  - NAUSEA [None]
  - PLATELET COUNT DECREASED [None]
  - PYREXIA [None]
  - RED BLOOD CELL COUNT DECREASED [None]
  - RENAL FAILURE ACUTE [None]
  - WHITE BLOOD CELL COUNT DECREASED [None]
